FAERS Safety Report 8916031 (Version 1)
Quarter: 2012Q4

REPORT INFORMATION
  Report Type: 
  Country: US (occurrence: US)
  Receive Date: 20121119
  Receipt Date: 20121119
  Transmission Date: 20130627
  Serious: Yes (Hospitalization)
  Sender: FDA-Public Use
  Company Number: US-TEVA-370326USA

PATIENT
  Age: 45 Year
  Sex: Female

DRUGS (3)
  1. GEMCITABINE [Suspect]
     Indication: BILE DUCT CANCER NON-RESECTABLE
     Dosage: 13 infusions at 2 week intervals
     Route: 050
  2. OXALIPLATIN [Suspect]
     Indication: BILE DUCT CANCER NON-RESECTABLE
     Dosage: 13 infusions at 2 week intervals
     Route: 050
  3. BEVACIZUMAB [Suspect]
     Indication: BILE DUCT CANCER NON-RESECTABLE
     Dosage: 13 infusions at 2 week intervals
     Route: 050

REACTIONS (1)
  - Posterior reversible encephalopathy syndrome [Recovered/Resolved]
